FAERS Safety Report 24748297 (Version 1)
Quarter: 2024Q4

REPORT INFORMATION
  Report Type: Spontaneous
  Country: US (occurrence: None)
  Receive Date: 20241217
  Receipt Date: 20241217
  Transmission Date: 20250115
  Serious: Yes (Other)
  Sender: Public
  Company Number: None

PATIENT
  Age: 65 Year
  Sex: Female
  Weight: 76.5 kg

DRUGS (9)
  1. SIMPONI ARIA [Suspect]
     Active Substance: GOLIMUMAB
     Indication: Psoriatic arthropathy
     Dates: start: 20241206
  2. METHOTREXATE [Concomitant]
     Active Substance: METHOTREXATE
  3. LOSARTAN [Concomitant]
     Active Substance: LOSARTAN
  4. metoporal [Concomitant]
  5. atorvistatin [Concomitant]
  6. LEUCOVORIN [Concomitant]
     Active Substance: LEUCOVORIN\LEUCOVORIN CALCIUM
  7. FOLIC ACID [Concomitant]
     Active Substance: FOLIC ACID
  8. VITAMIN D [Concomitant]
     Active Substance: VITAMIN D NOS
  9. BIOTIN [Concomitant]
     Active Substance: BIOTIN

REACTIONS (6)
  - Diarrhoea [None]
  - Nausea [None]
  - Abdominal pain upper [None]
  - Dehydration [None]
  - Hypotension [None]
  - Infusion related reaction [None]

NARRATIVE: CASE EVENT DATE: 20241206
